FAERS Safety Report 7749486-5 (Version None)
Quarter: 2011Q3

REPORT INFORMATION
  Report Type: 
  Country: None (occurrence: None)
  Receive Date: 20110907
  Receipt Date: 20110827
  Transmission Date: 20111222
  Serious: Yes (Hospitalization)
  Sender: FDA-Public Use
  Company Number: 2011102029

PATIENT
  Age: 65 Year
  Sex: Male
  Weight: 62 kg

DRUGS (7)
  1. METOPROLOL TARTRATE [Concomitant]
  2. ASPIRIN [Concomitant]
  3. RAMACE (RAMIPRIL) [Concomitant]
  4. DALTEPARIN SODIUM [Suspect]
     Indication: ANGINA UNSTABLE
     Dosage: 2500 IU, 1X/DAY, SUBCUTANEOUS
     Route: 058
     Dates: start: 20110128, end: 20110202
  5. DALTEPARIN SODIUM [Suspect]
     Indication: CORONARY ARTERY DISEASE
     Dosage: 2500 IU, 1X/DAY, SUBCUTANEOUS
     Route: 058
     Dates: start: 20110128, end: 20110202
  6. CLOPITAB (CLOPIDOGREL) [Concomitant]
  7. CILOSTAZOL (COLOSTAZOL) [Concomitant]

REACTIONS (4)
  - TRANSIENT ISCHAEMIC ATTACK [None]
  - FOOT AMPUTATION [None]
  - HAEMOGLOBIN DECREASED [None]
  - HYPOGLYCAEMIA [None]
